FAERS Safety Report 9350580 (Version 1)
Quarter: 2013Q2

REPORT INFORMATION
  Report Type: Spontaneous
  Country: NL (occurrence: NL)
  Receive Date: 20130617
  Receipt Date: 20130617
  Transmission Date: 20140414
  Serious: Yes (Hospitalization)
  Sender: FDA-Public Use
  Company Number: NL-009507513-1306NLD005645

PATIENT
  Age: 49 Year
  Sex: Female
  Weight: 65 kg

DRUGS (1)
  1. AMITRIPTYLINE HYDROCHLORIDE [Suspect]
     Dosage: 25 MG, TID
     Route: 048
     Dates: start: 20090413, end: 20130123

REACTIONS (3)
  - Hyperhidrosis [Unknown]
  - Dry mouth [Unknown]
  - Therapeutic response decreased [Unknown]
